FAERS Safety Report 19728364 (Version 1)
Quarter: 2021Q3

REPORT INFORMATION
  Report Type: Spontaneous
  Country: DE (occurrence: DE)
  Receive Date: 20210820
  Receipt Date: 20210820
  Transmission Date: 20211014
  Serious: Yes (Other)
  Sender: FDA-Public Use
  Company Number: DE-AUROBINDO-AUR-APL-2014-06083

PATIENT
  Age: 30 Year
  Sex: Female
  Weight: 87 kg

DRUGS (6)
  1. FOLIC ACID. [Concomitant]
     Active Substance: FOLIC ACID
     Dosage: UNK
  2. FOLIC ACID. [Concomitant]
     Active Substance: FOLIC ACID
     Dosage: 4 MILLIGRAM, ONCE A DAY
     Route: 048
  3. SEROQUEL [Suspect]
     Active Substance: QUETIAPINE FUMARATE
     Dosage: 50 MILLIGRAM, ONCE A DAY
     Route: 048
     Dates: start: 20130810
  4. FOLIC ACID. [Concomitant]
     Active Substance: FOLIC ACID
     Indication: PROPHYLAXIS OF NEURAL TUBE DEFECT
     Dosage: 8 MILLIGRAM, ONCE A DAY
     Route: 048
     Dates: start: 20130315
  5. SERTRALINE FILM COATED TABLETS 50MG [Suspect]
     Active Substance: SERTRALINE HYDROCHLORIDE
     Indication: BIPOLAR DISORDER
     Dosage: 50 MILLIGRAM, ONCE A DAY
     Route: 048
     Dates: start: 20130304, end: 20130810
  6. SEROQUEL [Suspect]
     Active Substance: QUETIAPINE FUMARATE
     Indication: BIPOLAR DISORDER
     Dosage: 150 MILLIGRAM, ONCE A DAY
     Route: 048
     Dates: start: 20121213, end: 20130810

REACTIONS (6)
  - Drug exposure before pregnancy [Recovered/Resolved]
  - Low birth weight baby [Recovered/Resolved]
  - Foetal death [Recovered/Resolved]
  - Glucose tolerance impaired in pregnancy [Recovered/Resolved]
  - Small for dates baby [Recovered/Resolved]
  - Placental insufficiency [Recovered/Resolved]

NARRATIVE: CASE EVENT DATE: 201307
